FAERS Safety Report 6238114-6 (Version None)
Quarter: 2009Q2

REPORT INFORMATION
  Report Type: 
  Country: None (occurrence: None)
  Receive Date: 20090622
  Receipt Date: 20090617
  Transmission Date: 20091009
  Serious: Yes (Hospitalization, Other)
  Sender: FDA-Public Use
  Company Number: US-ROXANE LABORATORIES, INC.-2009-RO-00207RO

PATIENT
  Sex: Male

DRUGS (16)
  1. PREDNISONE TAB [Suspect]
     Indication: PROSTATE CANCER
     Dosage: 10 MG
     Dates: start: 20090122
  2. DEXAMETHASONE [Suspect]
     Indication: PREMEDICATION
     Route: 048
  3. DASATINIB [Suspect]
     Indication: PROSTATE CANCER
     Dosage: 100 MG
     Route: 048
     Dates: start: 20090122
  4. DASATINIB [Suspect]
     Dosage: 70 MG
     Dates: start: 20090212, end: 20090214
  5. PLACEBO [Suspect]
     Indication: PROSTATE CANCER
     Route: 048
     Dates: start: 20090122
  6. PLACEBO [Suspect]
     Dates: start: 20090212, end: 20090214
  7. TAXOTERE [Suspect]
     Indication: PROSTATE CANCER
     Route: 042
     Dates: start: 20090122, end: 20090122
  8. TAXOTERE [Suspect]
     Route: 042
     Dates: start: 20090212
  9. DEXAMETHASONE [Suspect]
     Dosage: 10 MG
     Route: 042
     Dates: start: 20090122, end: 20090122
  10. DILAUDID [Concomitant]
     Indication: CHEST PAIN
     Dates: start: 20090127, end: 20090128
  11. VICODIN [Concomitant]
     Indication: CHEST PAIN
     Dates: start: 20090127
  12. NITRO-DUR [Concomitant]
     Indication: CHEST PAIN
     Dates: start: 20090128, end: 20090203
  13. METOPROLOL SUCCINATE [Concomitant]
     Indication: CHEST PAIN
     Dates: start: 20090128, end: 20090202
  14. TYLENOL (CAPLET) [Concomitant]
     Indication: INFLUENZA LIKE ILLNESS
     Dates: start: 20090219, end: 20090224
  15. IMODIUM [Concomitant]
     Indication: INFLUENZA LIKE ILLNESS
     Dates: start: 20090219, end: 20090227
  16. ZOFRAN [Concomitant]
     Indication: INFLUENZA LIKE ILLNESS
     Dates: start: 20090219

REACTIONS (4)
  - CHEST PAIN [None]
  - CLOSTRIDIUM DIFFICILE COLITIS [None]
  - INFLUENZA LIKE ILLNESS [None]
  - THROMBOSIS [None]
